FAERS Safety Report 11890393 (Version 3)
Quarter: 2016Q2

REPORT INFORMATION
  Report Type: Report from Study
  Country: GB (occurrence: GB)
  Receive Date: 20160105
  Receipt Date: 20160407
  Transmission Date: 20160815
  Serious: Yes (Hospitalization, Other)
  Sender: FDA-Public Use
  Company Number: PHFR2015GB008442

PATIENT
  Age: 81 Year
  Sex: Female

DRUGS (6)
  1. LUCENTIS [Suspect]
     Active Substance: RANIBIZUMAB
     Indication: NEOVASCULAR AGE-RELATED MACULAR DEGENERATION
     Dosage: 0.5 MG (0.05 ML)
     Route: 065
     Dates: start: 20131104
  2. LUCENTIS [Suspect]
     Active Substance: RANIBIZUMAB
     Dosage: 0.5 MG (0.05 ML)
     Route: 065
     Dates: start: 20150820, end: 20150820
  3. ASPIRIN. [Concomitant]
     Active Substance: ASPIRIN
     Indication: THROMBOSIS PROPHYLAXIS
     Dosage: 75 MG, QD
     Route: 048
     Dates: start: 20150619
  4. LUCENTIS [Suspect]
     Active Substance: RANIBIZUMAB
     Dosage: 0.5 MG (0.05ML)
     Route: 065
     Dates: start: 20151204, end: 20151204
  5. GLYCERYL TRINITRATE [Concomitant]
     Active Substance: NITROGLYCERIN
     Indication: ANGINA PECTORIS
     Dosage: 400 UG (1-2 SPRAY), PRN
     Route: 060
     Dates: start: 2005
  6. ATORVASTATIN [Concomitant]
     Active Substance: ATORVASTATIN
     Indication: CARDIOVASCULAR EVENT PROPHYLAXIS
     Dosage: 40 MG, QHS
     Route: 048
     Dates: start: 20150623

REACTIONS (7)
  - Dizziness [Recovered/Resolved]
  - Dizziness [Unknown]
  - Dizziness [Recovered/Resolved]
  - Angina pectoris [Recovered/Resolved]
  - Dizziness [Recovered/Resolved]
  - Atrial fibrillation [Not Recovered/Not Resolved]
  - Chest pain [Recovered/Resolved]

NARRATIVE: CASE EVENT DATE: 20151002
